FAERS Safety Report 16419978 (Version 2)
Quarter: 2019Q3

REPORT INFORMATION
  Report Type: Report from Study
  Country: EG (occurrence: EG)
  Receive Date: 20190612
  Receipt Date: 20190918
  Transmission Date: 20191004
  Serious: Yes (Death)
  Sender: FDA-Public Use
  Company Number: EG-PFIZER INC-2019248250

PATIENT
  Age: 67 Year
  Sex: Male
  Weight: 53 kg

DRUGS (1)
  1. SUTENT [Suspect]
     Active Substance: SUNITINIB MALATE
     Indication: METASTATIC RENAL CELL CARCINOMA
     Dosage: 50 MG, 1X/DAY
     Route: 048
     Dates: start: 20181225, end: 20190311

REACTIONS (1)
  - Death [Fatal]

NARRATIVE: CASE EVENT DATE: 20190520
